FAERS Safety Report 9639222 (Version 2)
Quarter: 2013Q4

REPORT INFORMATION
  Report Type: Spontaneous
  Country: CN (occurrence: CN)
  Receive Date: 20131022
  Receipt Date: 20131028
  Transmission Date: 20140711
  Serious: Yes (Other)
  Sender: FDA-Public Use
  Company Number: CN-ROCHE-1290500

PATIENT
  Age: 57 Year
  Sex: Female

DRUGS (1)
  1. HERCEPTIN [Suspect]
     Indication: INVASIVE DUCTAL BREAST CARCINOMA
     Dosage: INITIAL DOSE:8MG/KG, SUBSEQUENT DOSE:6MG/KG
     Route: 041
     Dates: start: 20130825

REACTIONS (1)
  - Metastases to lung [Not Recovered/Not Resolved]
